FAERS Safety Report 6556458-5 (Version None)
Quarter: 2010Q1

REPORT INFORMATION
  Report Type: 
  Country: None (occurrence: None)
  Receive Date: 20100128
  Receipt Date: 20100119
  Transmission Date: 20100710
  Serious: Yes (Death, Life-Threatening, Hospitalization)
  Sender: FDA-Public Use
  Company Number: FR-PFIZER INC-2010006749

PATIENT
  Age: 79 Year
  Sex: Male

DRUGS (16)
  1. SOLU-MEDROL [Suspect]
     Dosage: UNK MG, UNK
     Dates: start: 20091024, end: 20091106
  2. TARCEVA [Suspect]
     Indication: LUNG NEOPLASM MALIGNANT
     Dosage: 150 MG, 1X/DAY
     Route: 048
     Dates: start: 20090520, end: 20091117
  3. SOLUPRED [Suspect]
     Dosage: 40 MG, 3X/DAY
     Route: 048
  4. COVERSYL [Concomitant]
     Dosage: 4 MG
  5. SELOKEN [Concomitant]
  6. PLAVIX [Concomitant]
     Dosage: 75 MG
  7. TRIFLUCAN [Concomitant]
  8. OMEPRAZOLE [Concomitant]
     Dosage: 40 MG
  9. TIORFAN [Concomitant]
  10. KAYEXALATE [Concomitant]
  11. INSULIN DETEMIR [Concomitant]
     Dosage: 100 U/ML
  12. XANAX [Concomitant]
  13. CLAFORAN [Concomitant]
     Dosage: 1 G
     Dates: start: 20091022, end: 20091106
  14. CIPROFLOXACIN HCL [Concomitant]
     Dosage: UNK
     Dates: start: 20091113, end: 20091124
  15. TAZOCILLINE [Concomitant]
     Dosage: UNK
     Dates: start: 20091113, end: 20091124
  16. KARDEGIC [Concomitant]
     Dosage: 75 MG

REACTIONS (1)
  - GASTROINTESTINAL PERFORATION [None]
